FAERS Safety Report 6391602-4 (Version None)
Quarter: 2009Q4

REPORT INFORMATION
  Report Type: 
  Country: None (occurrence: None)
  Receive Date: 20091007
  Receipt Date: 20090928
  Transmission Date: 20100525
  Serious: Yes (Other)
  Sender: FDA-Public Use
  Company Number: US-ASTRAZENECA-2009SE16540

PATIENT
  Age: 32 Year
  Sex: Male

DRUGS (2)
  1. SEROQUEL XR [Suspect]
     Indication: LOSS OF CONSCIOUSNESS
     Route: 048
     Dates: start: 20090101
  2. LAMICTAL [Suspect]
     Indication: LOSS OF CONSCIOUSNESS
     Dates: start: 20090101

REACTIONS (4)
  - CONVULSION [None]
  - FALL [None]
  - JOINT INJURY [None]
  - LOSS OF CONSCIOUSNESS [None]
